FAERS Safety Report 4264448-0 (Version None)
Quarter: 2004Q1

REPORT INFORMATION
  Report Type: 
  Country: None (occurrence: None)
  Receive Date: 20040106
  Receipt Date: 20040102
  Transmission Date: 20041129
  Serious: Yes (Hospitalization)
  Sender: FDA-Public Use
  Company Number: FR-GLAXOSMITHKLINE-B0318827A

PATIENT
  Age: 79 Year
  Sex: Male

DRUGS (9)
  1. AUGMENTIN [Suspect]
     Indication: PROPHYLAXIS
     Dosage: 1G SINGLE DOSE
     Route: 042
     Dates: start: 20030808, end: 20030808
  2. HYPNOVEL [Concomitant]
     Indication: INDUCTION OF ANAESTHESIA
     Route: 042
     Dates: start: 20030808, end: 20030808
  3. SUFENTA [Concomitant]
     Indication: INDUCTION OF ANAESTHESIA
     Route: 042
     Dates: start: 20030808, end: 20030808
  4. DIPRIVAN [Concomitant]
     Indication: INDUCTION OF ANAESTHESIA
     Route: 042
     Dates: start: 20030808, end: 20030808
  5. PERFALGAN [Concomitant]
     Dosage: 1G SINGLE DOSE
     Route: 042
     Dates: start: 20030808, end: 20030808
  6. PYOSTACINE [Concomitant]
     Route: 048
     Dates: start: 20030809, end: 20030810
  7. LOVENOX [Concomitant]
     Route: 058
     Dates: start: 20030809
  8. PENICILLIN G [Concomitant]
     Dosage: 5IU3 FOUR TIMES PER DAY
     Route: 042
     Dates: start: 20030810, end: 20030813
  9. HYTACAND [Concomitant]
     Indication: ESSENTIAL HYPERTENSION
     Route: 048
     Dates: start: 20030801

REACTIONS (7)
  - ANAEMIA MACROCYTIC [None]
  - DRUG INEFFECTIVE [None]
  - EXANTHEM [None]
  - PYREXIA [None]
  - RASH MACULO-PAPULAR [None]
  - SKIN TEST POSITIVE [None]
  - TOXIC SKIN ERUPTION [None]
